FAERS Safety Report 21169446 (Version 1)
Quarter: 2022Q3

REPORT INFORMATION
  Report Type: Report from Study
  Country: IT (occurrence: IT)
  Receive Date: 20220804
  Receipt Date: 20220804
  Transmission Date: 20221026
  Serious: Yes (Other)
  Sender: FDA-Public Use
  Company Number: None

PATIENT
  Age: 15 Year
  Sex: Female

DRUGS (5)
  1. METHOTREXATE [Suspect]
     Active Substance: METHOTREXATE
     Indication: Acute lymphocytic leukaemia recurrent
     Dosage: 12 MG/MONTHLY, PDF-11201000,DURATION 56DAYS
     Route: 065
     Dates: start: 20220330, end: 20220525
  2. METHOTREXATE [Suspect]
     Active Substance: METHOTREXATE
     Indication: Acute lymphocytic leukaemia recurrent
     Dosage: 25 MG / WEEK, PDF-10219000
     Route: 065
  3. CYTARABINE [Suspect]
     Active Substance: CYTARABINE
     Indication: Acute lymphocytic leukaemia recurrent
     Dosage: 30 MG / MONTHLY,PDF-11201000,DURATION 56DAYS
     Route: 065
     Dates: start: 20220330, end: 20220525
  4. PURINETHOL [Suspect]
     Active Substance: MERCAPTOPURINE
     Indication: Acute lymphocytic leukaemia recurrent
     Dosage: 62.5 MILLIGRAM DAILY; 62,5 MG/DAY, PDF-10219000
     Route: 065
  5. METHYLPREDNISOLONE SODIUM SUCCINATE [Concomitant]
     Active Substance: METHYLPREDNISOLONE SODIUM SUCCINATE
     Indication: Acute lymphocytic leukaemia recurrent
     Dosage: 10 MG / MONTHLY,DURATION 56DAYS
     Dates: start: 20220330, end: 20220525

REACTIONS (3)
  - Hyperbilirubinaemia [Not Recovered/Not Resolved]
  - Pancytopenia [Not Recovered/Not Resolved]
  - Alanine aminotransferase increased [Not Recovered/Not Resolved]

NARRATIVE: CASE EVENT DATE: 20220414
